FAERS Safety Report 25550307 (Version 1)
Quarter: 2025Q3

REPORT INFORMATION
  Report Type: Spontaneous
  Country: CH (occurrence: CH)
  Receive Date: 20250714
  Receipt Date: 20250714
  Transmission Date: 20251020
  Serious: Yes (Hospitalization, Other)
  Sender: SLATE RUN
  Company Number: CH-SLATERUN-2025SRLIT00100

PATIENT
  Age: 20 Year
  Sex: Male
  Weight: 66 kg

DRUGS (14)
  1. GUANFACINE [Suspect]
     Active Substance: GUANFACINE
     Indication: Behaviour disorder
     Route: 065
  2. GUANFACINE [Suspect]
     Active Substance: GUANFACINE
     Indication: Autism spectrum disorder
  3. BIPERIDEN [Suspect]
     Active Substance: BIPERIDEN
     Indication: Behaviour disorder
     Route: 065
  4. BIPERIDEN [Suspect]
     Active Substance: BIPERIDEN
     Indication: Autism spectrum disorder
  5. RISPERIDONE [Suspect]
     Active Substance: RISPERIDONE
     Indication: Behaviour disorder
     Route: 065
  6. RISPERIDONE [Suspect]
     Active Substance: RISPERIDONE
     Indication: Autism spectrum disorder
  7. LORAZEPAM [Suspect]
     Active Substance: LORAZEPAM
     Indication: Behaviour disorder
     Route: 065
  8. LORAZEPAM [Suspect]
     Active Substance: LORAZEPAM
     Indication: Autism spectrum disorder
  9. LEVOMEPROMAZINE [Suspect]
     Active Substance: LEVOMEPROMAZINE
     Indication: Behaviour disorder
     Route: 065
  10. LEVOMEPROMAZINE [Suspect]
     Active Substance: LEVOMEPROMAZINE
     Indication: Autism spectrum disorder
  11. DIPHENHYDRAMINE [Suspect]
     Active Substance: DIPHENHYDRAMINE
     Indication: Behaviour disorder
     Route: 065
  12. DIPHENHYDRAMINE [Suspect]
     Active Substance: DIPHENHYDRAMINE
     Indication: Autism spectrum disorder
  13. DOXYLAMINE [Suspect]
     Active Substance: DOXYLAMINE
     Indication: Behaviour disorder
     Route: 065
  14. DOXYLAMINE [Suspect]
     Active Substance: DOXYLAMINE
     Indication: Autism spectrum disorder

REACTIONS (1)
  - Urinary retention [Recovered/Resolved]
